FAERS Safety Report 7449682-0 (Version None)
Quarter: 2011Q2

REPORT INFORMATION
  Report Type: 
  Country: None (occurrence: None)
  Receive Date: 20110421
  Receipt Date: 20110411
  Transmission Date: 20111010
  Serious: Yes (Hospitalization, Other)
  Sender: FDA-Public Use
  Company Number: 885331

PATIENT
  Age: 77 Year
  Sex: Male

DRUGS (8)
  1. WARFARIN SODIUM [Concomitant]
  2. ACYCLOVIR SODIUM [Suspect]
     Indication: PRODUCT USED FOR UNKNOWN INDICATION
     Dosage: 800MG, INTRAVENOUS
     Route: 042
  3. ATACAND [Concomitant]
  4. (ONE-ALPHA) [Concomitant]
  5. CALCIUM CARBONATE [Concomitant]
  6. METOPROLOL SUCCINATE [Concomitant]
  7. ATORVASTATIN [Concomitant]
  8. (VITAMIN B COMPLEX /00003501/) [Concomitant]

REACTIONS (1)
  - TOXICITY TO VARIOUS AGENTS [None]
